FAERS Safety Report 10267919 (Version 2)
Quarter: 2014Q3

REPORT INFORMATION
  Report Type: Spontaneous
  Country: US (occurrence: US)
  Receive Date: 20140630
  Receipt Date: 20140728
  Transmission Date: 20150326
  Serious: No
  Sender: FDA-Public Use
  Company Number: US-ROXANE LABORATORIES, INC.-2014-RO-00994RO

PATIENT
  Sex: Male

DRUGS (1)
  1. BUPRENORPHINE HYDROCHLORIDE. [Suspect]
     Active Substance: BUPRENORPHINE HYDROCHLORIDE
     Indication: PAIN
     Dosage: 16 MG
     Route: 060

REACTIONS (7)
  - Pruritus [Recovered/Resolved]
  - Headache [Recovered/Resolved]
  - Urticaria [Recovered/Resolved]
  - Mouth haemorrhage [Recovered/Resolved]
  - Product quality issue [Unknown]
  - Drug ineffective for unapproved indication [Unknown]
  - Cold sweat [Recovered/Resolved]
